FAERS Safety Report 8152098 (Version 3)
Quarter: 2013Q3

REPORT INFORMATION
  Report Type: Spontaneous
  Country: US (occurrence: US)
  Receive Date: 20110922
  Receipt Date: 20130911
  Transmission Date: 20140515
  Serious: Yes (Other)
  Sender: FDA-Public Use
  Company Number: US-ASTRAZENECA-2011SE12662

PATIENT
  Age: 574 Month
  Sex: Female
  Weight: 84.4 kg

DRUGS (2)
  1. SEROQUEL [Suspect]
     Route: 048
  2. SEROQUEL [Suspect]
     Dosage: 25-100 MG
     Route: 048
     Dates: start: 20050209

REACTIONS (3)
  - Pancreatitis [Unknown]
  - Diabetic coma [Unknown]
  - Type 2 diabetes mellitus [Unknown]
